FAERS Safety Report 8828032 (Version 4)
Quarter: 2013Q1

REPORT INFORMATION
  Report Type: Spontaneous
  Country: US (occurrence: US)
  Receive Date: 20121005
  Receipt Date: 20130130
  Transmission Date: 20140127
  Serious: Yes (Hospitalization, Other)
  Sender: FDA-Public Use
  Company Number: US-ENDO PHARMACEUTICALS INC.-OPCR20121912

PATIENT
  Age: 22 Year
  Sex: Female

DRUGS (3)
  1. OPANA ER [Suspect]
     Indication: DRUG ABUSE
     Dosage: UNKNOWN
     Dates: start: 201207, end: 20120824
  2. OPANA ER [Suspect]
     Dosage: UNKNOWN
     Dates: start: 201207, end: 20120824
  3. OPANA ER [Concomitant]
     Indication: DRUG ABUSE
     Dosage: N/A
     Dates: end: 2012

REACTIONS (8)
  - Haemolytic uraemic syndrome [Recovered/Resolved]
  - Thrombotic thrombocytopenic purpura [Recovered/Resolved]
  - Staphylococcal bacteraemia [Unknown]
  - Endocarditis staphylococcal [Unknown]
  - Renal failure acute [Recovered/Resolved]
  - Wrong technique in drug usage process [Recovered/Resolved]
  - Incorrect route of drug administration [Recovered/Resolved]
  - Drug abuse [Recovered/Resolved]
